FAERS Safety Report 7553075-5 (Version None)
Quarter: 2011Q2

REPORT INFORMATION
  Report Type: 
  Country: None (occurrence: None)
  Receive Date: 20110616
  Receipt Date: 20110608
  Transmission Date: 20111010
  Serious: No
  Sender: FDA-Public Use
  Company Number: US-RB-026506-11

PATIENT
  Age: 52 Year
  Sex: Female

DRUGS (4)
  1. ZOLOFT [Concomitant]
     Indication: BIPOLAR DISORDER
     Dosage: DOSAGE INFORMATION UNKNOWN
     Route: 065
  2. XANAX [Concomitant]
     Indication: BRAIN INJURY
     Dosage: DOSING INFORMATION UNKNOWN
     Route: 065
  3. XANAX [Concomitant]
     Dosage: DOSING INFORMATION UNKNOWN
     Route: 065
  4. SUBOXONE [Suspect]
     Indication: DRUG DEPENDENCE
     Dosage: DOSING INFORMATION UNKNOWN- SUBLINGUAL FILM
     Route: 060
     Dates: start: 20110301, end: 20110301

REACTIONS (1)
  - NO ADVERSE EVENT [None]
